FAERS Safety Report 9519598 (Version 11)
Quarter: 2014Q4

REPORT INFORMATION
  Report Type: Spontaneous
  Country: US (occurrence: US)
  Receive Date: 20130912
  Receipt Date: 20141012
  Transmission Date: 20150529
  Serious: No
  Sender: FDA-Public Use
  Company Number: US-009507513-1309USA002630

PATIENT
  Sex: Male

DRUGS (12)
  1. RIBAVIRIN. [Suspect]
     Active Substance: RIBAVIRIN
     Dosage: 1200 MG, QD  (1 IN 1 DAY)
     Route: 048
     Dates: start: 20140317
  2. PEGASYS [Suspect]
     Active Substance: PEGINTERFERON ALFA-2A
     Indication: CHRONIC HEPATITIS C
     Dosage: 180 MICROGRAM, QW/ 1 IN 1 WEEK, PROCLICK INJECTOR
     Route: 065
     Dates: start: 20130807
  3. GABAPENTIN. [Concomitant]
     Active Substance: GABAPENTIN
     Indication: DEPRESSION
     Dosage: 600 MG, QD
  4. RIBAVIRIN. [Suspect]
     Active Substance: RIBAVIRIN
     Dosage: 600 MG, QD (1 IN 1 DAY)
     Route: 048
     Dates: start: 20130904, end: 20140712
  5. SPIRIVA [Concomitant]
     Active Substance: TIOTROPIUM BROMIDE MONOHYDRATE
     Indication: CHRONIC OBSTRUCTIVE PULMONARY DISEASE
     Dosage: UNK
  6. CELEXA [Concomitant]
     Active Substance: CITALOPRAM HYDROBROMIDE
     Indication: DEPRESSION
     Dosage: 20 MG, QD
  7. VICTRELIS [Suspect]
     Active Substance: BOCEPREVIR
     Dosage: 4 TABLET, TID (3 IN 1 DAY)
     Route: 065
     Dates: start: 20130904, end: 20140712
  8. RIBAVIRIN. [Suspect]
     Active Substance: RIBAVIRIN
     Indication: CHRONIC HEPATITIS C
     Dosage: 1200 MG, QD (1 IN 1 DAY)
     Route: 048
     Dates: start: 20130807, end: 20140712
  9. RIBAVIRIN. [Suspect]
     Active Substance: RIBAVIRIN
     Dosage: 600 MG, QD  (1 IN 1 DAY)
     Route: 048
     Dates: start: 20140129
  10. NAPROXEN. [Concomitant]
     Active Substance: NAPROXEN
     Dosage: 500 MG, 1-2 TIMES PER DAY
     Route: 065
  11. VICTRELIS [Suspect]
     Active Substance: BOCEPREVIR
     Indication: CHRONIC HEPATITIS C
     Dosage: 4 TABLET, TID (3 IN 1 DAY)
     Route: 065
     Dates: start: 20130807
  12. PEGASYS [Suspect]
     Active Substance: PEGINTERFERON ALFA-2A
     Dosage: 180 MICROGRAM, QW/ 1 IN 1 WEEK, PROCLICK INJECTOR
     Route: 065
     Dates: start: 20130904, end: 20140709

REACTIONS (17)
  - Nasopharyngitis [Unknown]
  - Abdominal pain [Unknown]
  - Dry mouth [Unknown]
  - Hepatic enzyme increased [Unknown]
  - Irritability [Unknown]
  - Anaemia [Unknown]
  - Hepatic steatosis [Unknown]
  - Vision blurred [Unknown]
  - Malaise [Unknown]
  - Dysgeusia [Recovered/Resolved]
  - Cataract [Unknown]
  - Blood potassium decreased [Recovered/Resolved]
  - Muscle disorder [Unknown]
  - Fatigue [Recovering/Resolving]
  - Platelet count decreased [Unknown]
  - Insomnia [Unknown]
  - Cough [Unknown]

NARRATIVE: CASE EVENT DATE: 2013
